FAERS Safety Report 8781561 (Version 1)
Quarter: 2012Q4

REPORT INFORMATION
  Report Type: 
  Country: DE (occurrence: DE)
  Receive Date: 20120913
  Receipt Date: 20120913
  Transmission Date: 20130627
  Serious: Yes (Hospitalization)
  Sender: FDA-Public Use
  Company Number: DE-PFIZER INC-2012222592

PATIENT
  Age: 71 Year
  Sex: Female
  Weight: 73 kg

DRUGS (6)
  1. GENOTROPIN [Suspect]
     Dosage: 0.2 mg, 7/wk
     Route: 058
     Dates: start: 20080717
  2. ACTIVELL [Concomitant]
     Indication: HYPOGONADISM
     Dosage: UNK
     Dates: start: 20060307
  3. HYDROCORTISONE [Concomitant]
     Indication: BLOOD CORTICOTROPHIN DECREASED
     Dosage: UNK
     Dates: start: 20060307
  4. L-THYROXIN [Concomitant]
     Indication: THYROIDITIS
     Dosage: UNK
     Dates: start: 20060307
  5. MINIRIN [Concomitant]
     Indication: DIABETES INSIPIDUS
     Dosage: UNK
     Dates: start: 20060307
  6. DHEAS [Concomitant]
     Indication: DEHYDROEPIANDROSTERONE DECREASED
     Dosage: UNK
     Dates: start: 19261007

REACTIONS (1)
  - Cardiac disorder [Unknown]
